FAERS Safety Report 5913757-5 (Version None)
Quarter: 2008Q4

REPORT INFORMATION
  Report Type: 
  Country: None (occurrence: None)
  Receive Date: 20081006
  Receipt Date: 20080930
  Transmission Date: 20090506
  Serious: Yes (Other)
  Sender: FDA-Public Use
  Company Number: ADR2222008

PATIENT
  Sex: Female

DRUGS (1)
  1. ALENDRON BETA (ALENDRONATE) TABLETS 70 MG [Suspect]
     Dosage: 70 MG ONCE WEEKLY, ORAL
     Route: 048

REACTIONS (1)
  - ARRHYTHMIA [None]
